FAERS Safety Report 25504340 (Version 1)
Quarter: 2025Q3

REPORT INFORMATION
  Report Type: Spontaneous
  Country: CA (occurrence: CA)
  Receive Date: 20250702
  Receipt Date: 20250702
  Transmission Date: 20251021
  Serious: Yes (Hospitalization)
  Sender: TEVA
  Company Number: CA-TEVA-VS-3339343

PATIENT
  Age: 41 Year
  Sex: Female

DRUGS (6)
  1. MERCAPTOPURINE [Suspect]
     Active Substance: MERCAPTOPURINE
     Indication: Acute promyelocytic leukaemia
     Route: 065
  2. PREDNISONE [Concomitant]
     Active Substance: PREDNISONE
     Indication: Acute promyelocytic leukaemia
     Route: 065
  3. IDARUBICIN [Concomitant]
     Active Substance: IDARUBICIN
     Indication: Acute promyelocytic leukaemia
     Route: 065
  4. TRETINOIN [Concomitant]
     Active Substance: TRETINOIN
     Indication: Acute promyelocytic leukaemia
     Route: 065
  5. ARSENIC TRIOXIDE [Concomitant]
     Active Substance: ARSENIC TRIOXIDE
     Indication: Acute promyelocytic leukaemia
     Route: 065
  6. METHOTREXATE [Suspect]
     Active Substance: METHOTREXATE
     Indication: Acute promyelocytic leukaemia
     Route: 065

REACTIONS (4)
  - Toxicity to various agents [Recovering/Resolving]
  - Myelosuppression [Recovering/Resolving]
  - Alopecia [Recovering/Resolving]
  - Drug-induced liver injury [Recovering/Resolving]
